FAERS Safety Report 7883476-7 (Version None)
Quarter: 2011Q4

REPORT INFORMATION
  Report Type: 
  Country: None (occurrence: None)
  Receive Date: 20111031
  Receipt Date: 20111017
  Transmission Date: 20120403
  Serious: Yes (Other)
  Sender: FDA-Public Use
  Company Number: 1000024976

PATIENT
  Age: 20 Year
  Sex: Female
  Weight: 45 kg

DRUGS (4)
  1. ZYPREXA [Suspect]
     Indication: CONFUSIONAL STATE
     Dosage: 10 MG (10 MG, 1 IN 1 D), ORAL
     Route: 048
  2. LENDORMIN (BROTIZOLAM) (TABLETS) [Suspect]
     Indication: INSOMNIA
     Dosage: 0.25 MG (0.25 MG, 1 IN 1 D), ORAL
     Route: 048
  3. SILECE (FLUNITRAZEPAM) (TABLETS) [Suspect]
     Indication: INSOMNIA
     Dosage: 2 MG (2 MG, 1 IN 1 D), ORAL; 5 MG (5 MG, 1 IN 1 D), ORAL
     Route: 048
  4. LEXAPRO [Suspect]
     Indication: DEPRESSION
     Dosage: 10 MG (10 MG, 1 IN 1 D), ORAL
     Route: 048
     Dates: start: 20111013, end: 20111013

REACTIONS (4)
  - DEPRESSION [None]
  - CONFUSIONAL STATE [None]
  - FEELING ABNORMAL [None]
  - GRAND MAL CONVULSION [None]
